FAERS Safety Report 23073712 (Version 1)
Quarter: 2023Q4

REPORT INFORMATION
  Report Type: Spontaneous
  Country: US (occurrence: US)
  Receive Date: 20231017
  Receipt Date: 20231017
  Transmission Date: 20240110
  Serious: Yes (Other)
  Sender: FDA-Public Use
  Company Number: US-UCBSA-2023048745

PATIENT
  Age: 26 Year
  Sex: Male

DRUGS (1)
  1. FINTEPLA [Suspect]
     Active Substance: FENFLURAMINE
     Indication: Product used for unknown indication
     Dosage: UNK

REACTIONS (7)
  - Seizure [Unknown]
  - Hypersomnia [Unknown]
  - Fatigue [Unknown]
  - Seasonal allergy [Unknown]
  - Head injury [Unknown]
  - Fall [Unknown]
  - Suture insertion [Unknown]
